FAERS Safety Report 8520839-0 (Version None)
Quarter: 2012Q3

REPORT INFORMATION
  Report Type: 
  Country: None (occurrence: None)
  Receive Date: 20120719
  Receipt Date: 20120710
  Transmission Date: 20120928
  Serious: Yes (Hospitalization, Other)
  Sender: FDA-Public Use
  Company Number: US-VERTEX PHARMACEUTICALS INC.-AE-2012-009391

PATIENT
  Sex: Male
  Weight: 80.2 kg

DRUGS (7)
  1. TRAMADOL HYDROCHLORIDE [Concomitant]
  2. COPEGUS [Suspect]
     Indication: HEPATITIS C
     Route: 048
     Dates: start: 20120615, end: 20120623
  3. EFFEXOR [Concomitant]
     Indication: DEPRESSION
     Dates: start: 20120620
  4. VX-950 [Suspect]
     Indication: HEPATITIS C
     Route: 048
     Dates: start: 20120615, end: 20120623
  5. PEGASYS [Suspect]
     Indication: HEPATITIS C
     Route: 058
     Dates: start: 20120615, end: 20120623
  6. GLUCOPHAGE [Concomitant]
  7. GLYBURIDE [Concomitant]
     Indication: DIABETES MELLITUS
     Dates: start: 20050101

REACTIONS (1)
  - PANCREATITIS [None]
